FAERS Safety Report 7830394-6 (Version None)
Quarter: 2011Q4

REPORT INFORMATION
  Report Type: 
  Country: None (occurrence: None)
  Receive Date: 20111021
  Receipt Date: 20111012
  Transmission Date: 20120403
  Serious: Yes (Hospitalization, Other)
  Sender: FDA-Public Use
  Company Number: US-PFIZER INC-2011232587

PATIENT
  Age: 21 Year
  Sex: Male

DRUGS (3)
  1. WARFARIN SODIUM [Interacting]
     Indication: DEEP VEIN THROMBOSIS
     Dosage: 2.5 MG, ONE OR TWO DAILY
     Route: 048
     Dates: start: 20110901, end: 20110925
  2. DILANTIN-125 [Interacting]
     Indication: EPILEPSY
     Dosage: UNK
     Route: 048
  3. ROCEPHIN [Suspect]
     Indication: EAR INFECTION
     Dosage: UNK
     Route: 051
     Dates: start: 20110901, end: 20110926

REACTIONS (4)
  - STATUS EPILEPTICUS [None]
  - ANTICONVULSANT DRUG LEVEL DECREASED [None]
  - DRUG INTERACTION [None]
  - EAR INFECTION [None]
